FAERS Safety Report 7368491-4 (Version None)
Quarter: 2011Q1

REPORT INFORMATION
  Report Type: 
  Country: None (occurrence: None)
  Receive Date: 20110323
  Receipt Date: 20110315
  Transmission Date: 20110831
  Serious: Yes (Other)
  Sender: FDA-Public Use
  Company Number: US-ASTELLAS-2011US000662

PATIENT

DRUGS (3)
  1. PROGRAF [Suspect]
     Dosage: 2 MG AM, 1.5 MG PM
     Dates: end: 20110201
  2. PROGRAF [Suspect]
     Dosage: 2 MG AM, 1 MG PM
     Route: 065
     Dates: start: 20110201
  3. PROGRAF [Suspect]
     Indication: LIVER TRANSPLANT
     Dosage: 15 MG, BID
     Route: 065
     Dates: start: 19990101

REACTIONS (2)
  - ANXIETY [None]
  - CAROTID ARTERY OCCLUSION [None]
